FAERS Safety Report 4311109-5 (Version None)
Quarter: 2004Q1

REPORT INFORMATION
  Report Type: 
  Country: None (occurrence: None)
  Receive Date: 20040302
  Receipt Date: 20040220
  Transmission Date: 20041129
  Serious: Yes (Hospitalization)
  Sender: FDA-Public Use
  Company Number: 200413349BWH

PATIENT
  Age: 56 Year
  Sex: Male
  Weight: 64.8644 kg

DRUGS (6)
  1. CIPRO [Suspect]
     Indication: PROSTATE INFECTION
     Dates: start: 20030523
  2. VIOXX [Concomitant]
  3. PREVACID [Concomitant]
  4. CONCERTA [Concomitant]
  5. PROZAC [Concomitant]
  6. DIAMOX [Concomitant]

REACTIONS (9)
  - ABASIA [None]
  - BONE DISORDER [None]
  - DRY MOUTH [None]
  - FUNGAL INFECTION [None]
  - INTERVERTEBRAL DISC DISORDER [None]
  - LUDWIG ANGINA [None]
  - OSTEOMYELITIS [None]
  - RASH [None]
  - STREPTOCOCCAL INFECTION [None]
